FAERS Safety Report 9470141 (Version 1)
Quarter: 2013Q3

REPORT INFORMATION
  Report Type: Spontaneous
  Country: MX (occurrence: MX)
  Receive Date: 20130822
  Receipt Date: 20130822
  Transmission Date: 20140515
  Serious: Yes (Other)
  Sender: FDA-Public Use
  Company Number: MX-UCBSA-095404

PATIENT
  Age: 64 Year
  Sex: Male
  Weight: 63 kg

DRUGS (4)
  1. NUBRENZA [Suspect]
     Indication: PARKINSON^S DISEASE
     Route: 062
     Dates: start: 2010, end: 20130627
  2. RASAGILINE [Concomitant]
     Indication: PARKINSON^S DISEASE
     Dosage: UNKNOWN
     Route: 048
     Dates: start: 2010
  3. LEVODOPA [Concomitant]
     Indication: PARKINSON^S DISEASE
     Dosage: UNKNOWN
     Route: 048
     Dates: start: 2010
  4. QUETIAPINE [Concomitant]
     Indication: PARKINSON^S DISEASE
     Dosage: UNKNOWN
     Route: 048
     Dates: start: 2010

REACTIONS (2)
  - Suicidal ideation [Recovering/Resolving]
  - Jealous delusion [Recovering/Resolving]
